FAERS Safety Report 7117902-8 (Version None)
Quarter: 2010Q4

REPORT INFORMATION
  Report Type: 
  Country: None (occurrence: None)
  Receive Date: 20101118
  Receipt Date: 20101118
  Transmission Date: 20110411
  Serious: Yes (Other)
  Sender: FDA-Public Use
  Company Number: None

PATIENT
  Age: 30 Year
  Sex: Male
  Weight: 89.8122 kg

DRUGS (2)
  1. CIPROFLOXACIN HCL [Suspect]
     Dosage: 500MG 7 DAYS PO
     Route: 048
  2. CIPRO [Concomitant]

REACTIONS (18)
  - ANXIETY [None]
  - BLOOD DISORDER [None]
  - DECREASED APPETITE [None]
  - DEPRESSION [None]
  - DEREALISATION [None]
  - DYSPNOEA [None]
  - HEADACHE [None]
  - INSOMNIA [None]
  - MULTIPLE CHEMICAL SENSITIVITY [None]
  - MUSCLE ATROPHY [None]
  - NERVOUS SYSTEM DISORDER [None]
  - PAIN [None]
  - PALPITATIONS [None]
  - THINKING ABNORMAL [None]
  - TINNITUS [None]
  - TREMOR [None]
  - VERTIGO [None]
  - WEIGHT DECREASED [None]
